FAERS Safety Report 6444161-1 (Version None)
Quarter: 2009Q4

REPORT INFORMATION
  Report Type: 
  Country: None (occurrence: None)
  Receive Date: 20091118
  Receipt Date: 20091116
  Transmission Date: 20100525
  Serious: Yes (Other)
  Sender: FDA-Public Use
  Company Number: US-ALLERGAN-0914209US

PATIENT
  Age: 78 Year
  Sex: Male

DRUGS (3)
  1. COMBIGAN [Suspect]
     Indication: GLAUCOMA
     Dosage: 1 GTT, BID
     Route: 047
     Dates: start: 20090601
  2. LUMIGAN [Concomitant]
     Indication: GLAUCOMA
     Dosage: 1 GTT, QD
     Route: 047
  3. TEGRETOL [Concomitant]
     Indication: TRIGEMINAL NEURALGIA

REACTIONS (1)
  - PLATELET COUNT DECREASED [None]
